FAERS Safety Report 8235449-2 (Version None)
Quarter: 2012Q1

REPORT INFORMATION
  Report Type: 
  Country: None (occurrence: None)
  Receive Date: 20120326
  Receipt Date: 20120321
  Transmission Date: 20120608
  Serious: Yes (Death)
  Sender: FDA-Public Use
  Company Number: PHHY2012GR024738

PATIENT

DRUGS (5)
  1. GENTAMICIN [Suspect]
  2. AMPICILLIN [Suspect]
  3. DEXAMETHASONE [Suspect]
  4. MANNITOL [Concomitant]
  5. CEFTRIAXONE [Suspect]

REACTIONS (1)
  - LISTERIOSIS [None]
